FAERS Safety Report 15237861 (Version 1)
Quarter: 2018Q3

REPORT INFORMATION
  Report Type: Spontaneous
  Country: US (occurrence: US)
  Receive Date: 20180710
  Receipt Date: 20180710
  Transmission Date: 20181010
  Serious: Yes (Other)
  Sender: FDA-Public Use
  Company Number: None

PATIENT
  Age: 61 Year
  Sex: Female
  Weight: 63 kg

DRUGS (4)
  1. LEVOTHYROXINE. [Suspect]
     Active Substance: LEVOTHYROXINE
     Indication: HYPOTHYROIDISM
     Route: 048
  2. LACRISERT [Concomitant]
     Active Substance: HYDROXYPROPYL CELLULOSE
  3. DOXYCYCLINE?IR?DR [Concomitant]
  4. ATORVASTATIN [Concomitant]
     Active Substance: ATORVASTATIN

REACTIONS (6)
  - Therapy cessation [None]
  - Product substitution issue [None]
  - Tremor [None]
  - Anxiety [None]
  - Palpitations [None]
  - Drug intolerance [None]

NARRATIVE: CASE EVENT DATE: 20180326
